FAERS Safety Report 19182730 (Version 1)
Quarter: 2021Q2

REPORT INFORMATION
  Report Type: Spontaneous
  Country: NL (occurrence: NL)
  Receive Date: 20210426
  Receipt Date: 20210426
  Transmission Date: 20210717
  Serious: Yes (Other)
  Sender: FDA-Public Use
  Company Number: NL-ELI_LILLY_AND_COMPANY-NL202104006764

PATIENT
  Sex: Female
  Weight: 74 kg

DRUGS (1)
  1. ABASAGLAR [Suspect]
     Active Substance: INSULIN GLARGINE
     Indication: DIABETES MELLITUS
     Dosage: 1 X PER DAG
     Route: 065
     Dates: start: 202011

REACTIONS (2)
  - Therapeutic response unexpected [Unknown]
  - Blood glucose increased [Unknown]
